FAERS Safety Report 8454086-8 (Version None)
Quarter: 2012Q2

REPORT INFORMATION
  Report Type: 
  Country: None (occurrence: None)
  Receive Date: 20120620
  Receipt Date: 20120608
  Transmission Date: 20120825
  Serious: No
  Sender: FDA-Public Use
  Company Number: US-ASTRAZENECA-2012SE39000

PATIENT
  Age: 7 Month
  Sex: Female

DRUGS (3)
  1. NEXIUM [Suspect]
     Dosage: HALF OF THE PACKET IN HALF TO ONE OZ OF WATER TWO TIMES  A DAY(MORNING AND BEDTIME)
     Route: 048
     Dates: start: 20120201
  2. NEOKATE [Concomitant]
  3. NEXIUM [Suspect]
     Indication: GASTROOESOPHAGEAL REFLUX DISEASE
     Route: 048

REACTIONS (2)
  - INFANTILE SPITTING UP [None]
  - OFF LABEL USE [None]
